FAERS Safety Report 16038955 (Version 1)
Quarter: 2019Q1

REPORT INFORMATION
  Report Type: Spontaneous
  Country: US (occurrence: US)
  Receive Date: 20190206
  Receipt Date: 20190206
  Transmission Date: 20190418
  Serious: No
  Sender: FDA-Public Use
  Company Number: None

PATIENT
  Age: 85 Year
  Sex: Female

DRUGS (4)
  1. CAPECITABINE TAB 500 MG [Suspect]
     Active Substance: CAPECITABINE
     Route: 048
     Dates: start: 20180101
  2. LISINOPRIL. [Suspect]
     Active Substance: LISINOPRIL
  3. LOVASTATIN. [Concomitant]
     Active Substance: LOVASTATIN
  4. SUTENT [Concomitant]
     Active Substance: SUNITINIB MALATE

REACTIONS (1)
  - Off label use [None]

NARRATIVE: CASE EVENT DATE: 20190206
